FAERS Safety Report 6035729-5 (Version None)
Quarter: 2009Q1

REPORT INFORMATION
  Report Type: 
  Country: None (occurrence: None)
  Receive Date: 20090113
  Receipt Date: 20090105
  Transmission Date: 20090719
  Serious: Yes (Other)
  Sender: FDA-Public Use
  Company Number: US-AMGEN-QUU326854

PATIENT
  Sex: Female
  Weight: 72.6 kg

DRUGS (6)
  1. ENBREL [Suspect]
     Indication: PSORIASIS
  2. ENBREL [Suspect]
     Indication: PSORIATIC ARTHROPATHY
  3. HUMIRA [Suspect]
     Indication: PSORIASIS
     Route: 058
     Dates: start: 20080701
  4. HYDROCORTISONE [Concomitant]
     Route: 061
  5. THOMAPYRIN N [Concomitant]
     Route: 048
  6. METHOTREXATE [Concomitant]

REACTIONS (11)
  - ARTHRALGIA [None]
  - CHEST DISCOMFORT [None]
  - CHEST PAIN [None]
  - FATIGUE [None]
  - GAIT DISTURBANCE [None]
  - HYPERTENSION [None]
  - HYPOAESTHESIA [None]
  - LICHEN PLANUS [None]
  - NAUSEA [None]
  - PAIN IN EXTREMITY [None]
  - WEIGHT INCREASED [None]
